FAERS Safety Report 5168168-X (Version None)
Quarter: 2006Q4

REPORT INFORMATION
  Report Type: 
  Country: None (occurrence: None)
  Receive Date: 20061208
  Receipt Date: 20061127
  Transmission Date: 20070319
  Serious: Yes (Hospitalization)
  Sender: FDA-Public Use
  Company Number: 2006CG01941

PATIENT
  Age: 80 Year
  Sex: Male
  Weight: 70 kg

DRUGS (11)
  1. TENORMIN [Suspect]
     Route: 048
     Dates: start: 20061019
  2. OMEPRAZOLE [Suspect]
     Route: 048
     Dates: start: 20061019
  3. PREVISCAN [Suspect]
     Route: 048
     Dates: end: 20061024
  4. PLAVIX [Suspect]
     Route: 048
     Dates: start: 20061019
  5. SIMVASTATIN [Suspect]
     Route: 048
     Dates: end: 20061024
  6. ISOPTIN [Suspect]
     Dates: start: 20061019, end: 20061019
  7. FLECAINE LP [Suspect]
  8. APROVEL [Suspect]
  9. ASPIRIN [Suspect]
     Dates: start: 20061019
  10. XYLOCAINE [Concomitant]
     Indication: LOCAL ANAESTHESIA
     Dates: start: 20061019, end: 20061019
  11. KAYEXALATE [Concomitant]

REACTIONS (1)
  - HEPATITIS [None]
